FAERS Safety Report 5164892-3 (Version None)
Quarter: 2006Q4

REPORT INFORMATION
  Report Type: 
  Country: None (occurrence: None)
  Receive Date: 20061127
  Receipt Date: 20061110
  Transmission Date: 20070319
  Serious: Yes (Other)
  Sender: FDA-Public Use
  Company Number: 2006BI016244

PATIENT
  Age: 34 Year
  Sex: Female

DRUGS (1)
  1. NATALIZUMAB [Suspect]
     Indication: MULTIPLE SCLEROSIS
     Dosage: 300 MG; QM; IV
     Route: 042
     Dates: start: 20061004

REACTIONS (5)
  - BACK PAIN [None]
  - FLANK PAIN [None]
  - GASTROINTESTINAL HAEMORRHAGE [None]
  - ORAL DISCOMFORT [None]
  - PHARYNGITIS STREPTOCOCCAL [None]
